FAERS Safety Report 5900210-8 (Version None)
Quarter: 2008Q3

REPORT INFORMATION
  Report Type: 
  Country: None (occurrence: None)
  Receive Date: 20080926
  Receipt Date: 20080923
  Transmission Date: 20090109
  Serious: Yes (Hospitalization)
  Sender: FDA-Public Use
  Company Number: DE-JNJFOC-20080905441

PATIENT
  Sex: Male

DRUGS (2)
  1. BETADORM D [Suspect]
  2. BETADORM D [Suspect]
     Indication: DRUG USE FOR UNKNOWN INDICATION
     Dosage: 2 PACKS OF TWENTY 50MG TABLETS

REACTIONS (2)
  - INTENTIONAL OVERDOSE [None]
  - SUICIDE ATTEMPT [None]
